FAERS Safety Report 5113762-5 (Version None)
Quarter: 2006Q3

REPORT INFORMATION
  Report Type: 
  Country: None (occurrence: None)
  Receive Date: 20060920
  Receipt Date: 20060914
  Transmission Date: 20061208
  Serious: Yes (Death, Life-Threatening, Hospitalization)
  Sender: FDA-Public Use
  Company Number: 251-CTHAL-05060316

PATIENT
  Age: 58 Year
  Sex: Female
  Weight: 84 kg

DRUGS (4)
  1. THALIDOMIDE (THALIDOMIDE) (CAPSULES) [Suspect]
     Indication: MULTIPLE MYELOMA
     Dosage: 200 MG, DAILY, ORAL
     Route: 048
     Dates: start: 20050304, end: 20050612
  2. DEXAMETHASONE TAB [Suspect]
     Indication: MULTIPLE MYELOMA
     Dosage: 40 MG, ORAL
     Route: 048
     Dates: start: 20050304, end: 20050612
  3. PYRIDOXINE (PYRIDOXINE) [Concomitant]
  4. LACTULOSE [Concomitant]

REACTIONS (8)
  - CARDIAC ARREST [None]
  - DEHYDRATION [None]
  - DIVERTICULAR PERFORATION [None]
  - DIVERTICULITIS [None]
  - DRUG TOXICITY [None]
  - MULTI-ORGAN FAILURE [None]
  - PERITONITIS [None]
  - SEPTIC SHOCK [None]
